FAERS Safety Report 10070994 (Version 1)
Quarter: 2014Q2

REPORT INFORMATION
  Report Type: Report from Study
  Country: CA (occurrence: CA)
  Receive Date: 20140410
  Receipt Date: 20140410
  Transmission Date: 20141212
  Serious: Yes (Hospitalization)
  Sender: FDA-Public Use
  Company Number: CA-BRISTOL-MYERS SQUIBB COMPANY-20598041

PATIENT
  Age: 68 Year
  Sex: Female

DRUGS (15)
  1. ABATACEPT SUBQ INJECTION 125MG/ML [Suspect]
     Indication: RHEUMATOID ARTHRITIS
     Route: 058
     Dates: start: 20131125
  2. CALCIUM [Concomitant]
  3. CRESTOR [Concomitant]
  4. GLYCOSIDE [Concomitant]
  5. IRON [Concomitant]
  6. JANUVIA [Concomitant]
  7. LEVEMIR [Concomitant]
  8. MAGNESIUM OXIDE [Concomitant]
  9. METFORMIN [Concomitant]
  10. MELOXICAM [Concomitant]
  11. RABEPRAZOLE [Concomitant]
  12. SPIRONOLACTONE [Concomitant]
  13. VITAMIN B12 [Concomitant]
  14. VITAMIN D [Concomitant]
     Dosage: 1DF=1000-UNITS NOS
  15. FOSAVANCE [Concomitant]

REACTIONS (2)
  - Hepatic cirrhosis [Unknown]
  - Drug ineffective [Unknown]
